FAERS Safety Report 17551191 (Version 1)
Quarter: 2020Q1

REPORT INFORMATION
  Report Type: Spontaneous
  Country: None (occurrence: US)
  Receive Date: 20200317
  Receipt Date: 20200317
  Transmission Date: 20200409
  Serious: No
  Sender: FDA-Public Use
  Company Number: US-ORION CORPORATION ORION PHARMA-ENT 2019-0075

PATIENT
  Age: 59 Year
  Sex: Male

DRUGS (8)
  1. LEVODOPA/CARBIDOPA [Interacting]
     Active Substance: CARBIDOPA\LEVODOPA
     Indication: DEMENTIA WITH LEWY BODIES
     Dosage: STRENGTH: 100/25 MG
     Route: 065
  2. LEVODOPA/CARBIDOPA [Interacting]
     Active Substance: CARBIDOPA\LEVODOPA
     Dosage: AT BEDTIME^; STRENGTH: 200/50 MG
     Route: 065
  3. VENLAFAXINE [Interacting]
     Active Substance: VENLAFAXINE HYDROCHLORIDE
     Indication: DEMENTIA WITH LEWY BODIES
     Route: 065
  4. DROXIDOPA [Interacting]
     Active Substance: DROXIDOPA
     Indication: ORTHOSTATIC HYPOTENSION
     Route: 065
  5. DROXIDOPA [Interacting]
     Active Substance: DROXIDOPA
     Route: 065
  6. FLUDROCORTISONE [Suspect]
     Active Substance: FLUDROCORTISONE
     Indication: ORTHOSTATIC HYPOTENSION
     Route: 065
  7. CARBIDOPA. [Interacting]
     Active Substance: CARBIDOPA
     Indication: DEMENTIA WITH LEWY BODIES
     Route: 065
  8. ENTACAPONE. [Suspect]
     Active Substance: ENTACAPONE
     Indication: DEMENTIA WITH LEWY BODIES
     Route: 065

REACTIONS (5)
  - Drug interaction [Unknown]
  - Irritability [Recovered/Resolved]
  - Agitation [Recovered/Resolved]
  - Orthostatic hypotension [Unknown]
  - Feeling abnormal [Recovered/Resolved]
